FAERS Safety Report 20323946 (Version 1)
Quarter: 2022Q1

REPORT INFORMATION
  Report Type: Spontaneous
  Country: US (occurrence: US)
  Receive Date: 20220111
  Receipt Date: 20220111
  Transmission Date: 20220423
  Serious: No
  Sender: FDA-Public Use
  Company Number: US-GLAXOSMITHKLINE-USCH2022001154

PATIENT
  Age: 71 Year
  Sex: Male

DRUGS (2)
  1. ADVIL [Suspect]
     Active Substance: IBUPROFEN
     Indication: Arthralgia
     Dosage: 2 DF, QD
     Dates: start: 20210107
  2. ADVIL [Suspect]
     Active Substance: IBUPROFEN
     Dosage: 1 DF, QD
     Dates: end: 20220107

REACTIONS (1)
  - Product use issue [Unknown]
